FAERS Safety Report 10491343 (Version 1)
Quarter: 2014Q4

REPORT INFORMATION
  Report Type: Spontaneous
  Country: US (occurrence: US)
  Receive Date: 20141002
  Receipt Date: 20141002
  Transmission Date: 20150528
  Serious: No
  Sender: FDA-Public Use
  Company Number: US-GLAXOSMITHKLINE-A1051454A

PATIENT
  Age: 71 Year
  Sex: Female

DRUGS (9)
  1. POTASSIUM [Concomitant]
     Active Substance: POTASSIUM
  2. VALSARTAN / HYDROCHLOROTHIAZIDE [Concomitant]
  3. ECOTRIN [Concomitant]
     Active Substance: ASPIRIN
  4. ROBITUSSIN (GUAIFENESIN) [Concomitant]
     Active Substance: GUAIFENESIN
  5. PROAIR HFA [Concomitant]
     Active Substance: ALBUTEROL SULFATE
  6. METFORMIN [Concomitant]
     Active Substance: METFORMIN HYDROCHLORIDE
  7. PREDNISONE. [Concomitant]
     Active Substance: PREDNISONE
  8. Z-PACK [Concomitant]
     Active Substance: AZITHROMYCIN DIHYDRATE
  9. ADVAIR HFA [Suspect]
     Active Substance: FLUTICASONE PROPIONATE\SALMETEROL XINAFOATE
     Indication: BRONCHITIS
     Dosage: 1PUFF TWICE PER DAY
     Route: 055
     Dates: start: 20131125

REACTIONS (9)
  - Blood glucose increased [Unknown]
  - Blood pressure increased [Unknown]
  - Chest discomfort [Recovered/Resolved]
  - Heart rate increased [Unknown]
  - Nervousness [Unknown]
  - Insomnia [Unknown]
  - Feeling abnormal [Unknown]
  - Accidental overdose [Recovering/Resolving]
  - Pain in extremity [Recovered/Resolved]

NARRATIVE: CASE EVENT DATE: 20131125
